FAERS Safety Report 5002108-9 (Version None)
Quarter: 2006Q2

REPORT INFORMATION
  Report Type: 
  Country: None (occurrence: None)
  Receive Date: 20060515
  Receipt Date: 20060302
  Transmission Date: 20061013
  Serious: Yes (Hospitalization, Disabling)
  Sender: FDA-Public Use
  Company Number: US-MERCK-0603USA00723

PATIENT
  Age: 70 Year
  Sex: Male
  Weight: 118 kg

DRUGS (3)
  1. VIOXX [Suspect]
     Indication: ARTHRITIS
     Route: 048
     Dates: start: 20010129, end: 20041007
  2. ASPIRIN [Concomitant]
     Route: 065
  3. TYLENOL (CAPLET) [Concomitant]
     Route: 065

REACTIONS (5)
  - ANXIETY [None]
  - CARDIOVASCULAR DISORDER [None]
  - CEREBROVASCULAR ACCIDENT [None]
  - MYOCARDIAL INFARCTION [None]
  - PROSTATE CANCER [None]
